FAERS Safety Report 8502042-3 (Version None)
Quarter: 2012Q2

REPORT INFORMATION
  Report Type: 
  Country: None (occurrence: None)
  Receive Date: 20120405
  Receipt Date: 20100719
  Transmission Date: 20120825
  Serious: Yes (Other)
  Sender: FDA-Public Use
  Company Number: PHHY2010US47655

PATIENT
  Sex: Female

DRUGS (1)
  1. RECLAST [Suspect]
     Dosage: INFUSION
     Dates: start: 20100714

REACTIONS (6)
  - ARTHRALGIA [None]
  - PYREXIA [None]
  - INFLUENZA LIKE ILLNESS [None]
  - PAIN [None]
  - OEDEMA PERIPHERAL [None]
  - ABASIA [None]
